FAERS Safety Report 16440342 (Version 3)
Quarter: 2019Q3

REPORT INFORMATION
  Report Type: Spontaneous
  Country: AU (occurrence: AU)
  Receive Date: 20190617
  Receipt Date: 20190715
  Transmission Date: 20191004
  Serious: Yes (Hospitalization, Other)
  Sender: FDA-Public Use
  Company Number: AU-MYLANLABS-2017M1053763

PATIENT
  Age: 49 Year
  Sex: Female
  Weight: 83 kg

DRUGS (7)
  1. BENZTROP [Concomitant]
     Indication: TREMOR
     Dosage: 2 DF, PM
  2. OLANZAPINE. [Concomitant]
     Active Substance: OLANZAPINE
     Dosage: 20 MILLIGRAM, QD
  3. QUILONUM RETARD [Concomitant]
     Active Substance: LITHIUM CARBONATE
     Indication: AFFECTIVE DISORDER
     Dosage: 1 DF, PM
  4. EPILIM [Concomitant]
     Active Substance: VALPROATE SODIUM
     Indication: AFFECTIVE DISORDER
     Dosage: 2 DF, PM
  5. CLOZARIL [Suspect]
     Active Substance: CLOZAPINE
     Dosage: 25 MILLIGRAM
     Route: 048
     Dates: start: 201708, end: 20170822
  6. AMISULPRIDE [Concomitant]
     Active Substance: AMISULPRIDE
     Dosage: 400 MILLIGRAM, QD
  7. CLOZARIL [Suspect]
     Active Substance: CLOZAPINE
     Indication: SCHIZOPHRENIA
     Dosage: 125 MILLIGRAM, PM
     Route: 048
     Dates: start: 20170731, end: 2017

REACTIONS (18)
  - Troponin increased [Recovered/Resolved]
  - Heart rate increased [Unknown]
  - Myocarditis [Unknown]
  - Blood uric acid increased [Unknown]
  - Alanine aminotransferase increased [Unknown]
  - Blood creatinine increased [Recovering/Resolving]
  - Blood bicarbonate decreased [Not Recovered/Not Resolved]
  - Blood albumin increased [Unknown]
  - Tachycardia [Unknown]
  - Gamma-glutamyltransferase increased [Unknown]
  - Schizophrenia [Unknown]
  - Cardiac disorder [Unknown]
  - Blood glucose increased [Not Recovered/Not Resolved]
  - Overweight [Unknown]
  - Disease complication [Unknown]
  - C-reactive protein increased [Not Recovered/Not Resolved]
  - QRS axis abnormal [Unknown]
  - Thyroxine free decreased [Unknown]

NARRATIVE: CASE EVENT DATE: 2017
